FAERS Safety Report 4347322-0 (Version None)
Quarter: 2004Q1

REPORT INFORMATION
  Report Type: 
  Country: None (occurrence: None)
  Receive Date: 20040329
  Receipt Date: 20040206
  Transmission Date: 20041129
  Serious: No
  Sender: FDA-Public Use
  Company Number: USA040258793

PATIENT
  Age: 7 Year
  Sex: Male
  Weight: 16 kg

DRUGS (2)
  1. STRATTERA [Suspect]
     Dosage: 25 MG/DAY
     Dates: start: 20030501
  2. GROWTH HORMONE [Concomitant]

REACTIONS (3)
  - DISTURBANCE IN ATTENTION [None]
  - DRUG EFFECT DECREASED [None]
  - TREMOR [None]
